FAERS Safety Report 18378243 (Version 1)
Quarter: 2020Q4

REPORT INFORMATION
  Report Type: Spontaneous
  Country: NO (occurrence: NO)
  Receive Date: 20201013
  Receipt Date: 20201013
  Transmission Date: 20210114
  Serious: Yes (Death)
  Sender: FDA-Public Use
  Company Number: NO-TEVA-2020-NO-1837760

PATIENT
  Age: 33 Year
  Sex: Male

DRUGS (2)
  1. BENZATHINE PHENOXYMETHYL PENICILLIN [Suspect]
     Active Substance: PENICILLIN V BENZATHINE
     Indication: PHARYNGITIS
  2. BENZATHINE PHENOXYMETHYL PENICILLIN [Suspect]
     Active Substance: PENICILLIN V BENZATHINE
     Indication: TONSILLITIS
     Route: 065
     Dates: start: 20181105

REACTIONS (7)
  - Speech disorder [Unknown]
  - Feeling cold [Unknown]
  - Tremor [Unknown]
  - Drug hypersensitivity [Fatal]
  - Breath sounds abnormal [Unknown]
  - Anaphylactic reaction [Fatal]
  - Heart rate increased [Unknown]

NARRATIVE: CASE EVENT DATE: 20181106
